FAERS Safety Report 9350885 (Version 3)
Quarter: 2014Q1

REPORT INFORMATION
  Report Type: Spontaneous
  Country: US (occurrence: US)
  Receive Date: 20130617
  Receipt Date: 20140316
  Transmission Date: 20141002
  Serious: Yes (Hospitalization)
  Sender: FDA-Public Use
  Company Number: US-BAYER-2013-071153

PATIENT
  Age: 39 Year
  Sex: Female
  Weight: 73.47 kg

DRUGS (2)
  1. MIRENA [Suspect]
     Indication: CONTRACEPTION
     Dosage: 20 MCG/24HR, CONT
     Route: 015
     Dates: start: 20080923, end: 20110608
  2. PRENATAL VITAMINS [Concomitant]
     Dosage: UNK
     Dates: start: 2006

REACTIONS (5)
  - Uterine perforation [None]
  - Device breakage [None]
  - Injury [None]
  - Procedural pain [None]
  - Scar [None]
